FAERS Safety Report 7103198-X (Version None)
Quarter: 2010Q4

REPORT INFORMATION
  Report Type: 
  Country: None (occurrence: None)
  Receive Date: 20101115
  Receipt Date: 20101104
  Transmission Date: 20110411
  Serious: Yes (Hospitalization)
  Sender: FDA-Public Use
  Company Number: FR-MERCK-1011FRA00023

PATIENT
  Age: 88 Year
  Sex: Female

DRUGS (20)
  1. PRIMAXIN [Suspect]
     Indication: POST PROCEDURAL INFECTION
     Route: 041
     Dates: start: 20091011, end: 20091207
  2. PRIMAXIN [Suspect]
     Indication: ENTEROBACTER TEST POSITIVE
     Route: 041
     Dates: start: 20091011, end: 20091207
  3. OFLOXACIN [Suspect]
     Indication: POST PROCEDURAL INFECTION
     Route: 048
     Dates: start: 20091011, end: 20091207
  4. OFLOXACIN [Suspect]
     Indication: ENTEROBACTER TEST POSITIVE
     Route: 048
     Dates: start: 20091011, end: 20091207
  5. ACETAMINOPHEN [Concomitant]
     Route: 065
     Dates: start: 20091205, end: 20091211
  6. OXYCODONE HYDROCHLORIDE [Concomitant]
     Route: 048
     Dates: start: 20091205, end: 20091211
  7. CALCIFEDIOL [Concomitant]
     Route: 065
  8. CALCIUM CITRATE AND CHOLECALCIFEROL [Concomitant]
     Route: 065
  9. ESOMEPRAZOLE MAGNESIUM [Concomitant]
     Route: 065
  10. DILTIAZEM HYDROCHLORIDE [Concomitant]
     Route: 048
  11. AMIODARONE [Concomitant]
     Route: 065
  12. PREGABALIN [Concomitant]
     Route: 065
  13. FUROSEMIDE [Concomitant]
     Route: 065
  14. ASPIRIN LYSINE [Concomitant]
     Route: 065
  15. POLYETHYLENE GLYCOL 4000 [Concomitant]
     Route: 065
  16. POTASSIUM CHLORIDE [Concomitant]
     Route: 065
  17. ZOPICLONE [Concomitant]
     Route: 065
  18. HEPARIN CALCIUM [Concomitant]
     Route: 065
  19. PHLOROGLUCINOL AND TRIMETHYLPHLOROGLUCINOL [Concomitant]
     Route: 065
  20. FLUCONAZOLE [Concomitant]
     Route: 065

REACTIONS (1)
  - DRUG RASH WITH EOSINOPHILIA AND SYSTEMIC SYMPTOMS [None]
